FAERS Safety Report 6148429-8 (Version None)
Quarter: 2009Q2

REPORT INFORMATION
  Report Type: 
  Country: None (occurrence: None)
  Receive Date: 20090408
  Receipt Date: 20090408
  Transmission Date: 20091009
  Serious: Yes (Other)
  Sender: FDA-Public Use
  Company Number: US-PFIZER INC-2007070158

PATIENT
  Sex: Female

DRUGS (2)
  1. CHANTIX [Suspect]
  2. LYRICA [Interacting]

REACTIONS (4)
  - DRUG INTERACTION [None]
  - NAUSEA [None]
  - SURGERY [None]
  - VOMITING [None]
